FAERS Safety Report 15595762 (Version 1)
Quarter: 2018Q4

REPORT INFORMATION
  Report Type: Report from Study
  Country: None (occurrence: PL)
  Receive Date: 20181107
  Receipt Date: 20181107
  Transmission Date: 20190205
  Serious: Yes (Other)
  Sender: FDA-Public Use
  Company Number: PL-BIOVITRUM-2018PL1334

PATIENT
  Sex: Female
  Weight: 22 kg

DRUGS (1)
  1. ORFADIN [Suspect]
     Active Substance: NITISINONE
     Indication: TYROSINAEMIA
     Dates: start: 20170806

REACTIONS (5)
  - Diet noncompliance [Unknown]
  - Amino acid level decreased [Unknown]
  - Amino acid level increased [Unknown]
  - Hepatic lesion [Unknown]
  - Succinylacetone increased [Unknown]
